FAERS Safety Report 4844628-3 (Version None)
Quarter: 2005Q4

REPORT INFORMATION
  Report Type: 
  Country: None (occurrence: None)
  Receive Date: 20051205
  Receipt Date: 20050624
  Transmission Date: 20060501
  Serious: Yes (Hospitalization)
  Sender: FDA-Public Use
  Company Number: HQWYE707227JUN05

PATIENT
  Sex: Female

DRUGS (9)
  1. ENBREL [Suspect]
     Indication: RHEUMATOID ARTHRITIS
     Route: 058
     Dates: start: 20050603
  2. ISONIAZID [Concomitant]
     Route: 065
     Dates: start: 20050603, end: 20050624
  3. PREDNISOLONE [Concomitant]
     Dosage: DOSE AND FREQUENCY UNKNOWN
     Route: 065
     Dates: start: 19990101
  4. PREDNISOLONE [Concomitant]
     Route: 048
     Dates: start: 20040301
  5. DOXAZOSIN MESYLATE [Concomitant]
     Route: 065
  6. MANIDIPINE HYDROCHLORIDE [Concomitant]
     Route: 065
  7. ONE-ALPHA [Concomitant]
     Route: 065
  8. PARIET [Concomitant]
     Route: 065
  9. LORNOXICAM [Concomitant]
     Route: 065

REACTIONS (3)
  - HAEMORRHAGE SUBCUTANEOUS [None]
  - PETECHIAE [None]
  - PYREXIA [None]
